FAERS Safety Report 11322037 (Version 14)
Quarter: 2016Q2

REPORT INFORMATION
  Report Type: Report from Study
  Country: US (occurrence: US)
  Receive Date: 20150729
  Receipt Date: 20160623
  Transmission Date: 20160815
  Serious: Yes (Hospitalization, Other)
  Sender: FDA-Public Use
  Company Number: US-SA-2015SA090742

PATIENT
  Age: 42 Year
  Sex: Female

DRUGS (1)
  1. LEMTRADA [Suspect]
     Active Substance: ALEMTUZUMAB
     Indication: MULTIPLE SCLEROSIS
     Route: 041
     Dates: start: 20150601, end: 20150605

REACTIONS (30)
  - Cardiac disorder [Unknown]
  - Nausea [Unknown]
  - Pneumonia [Not Recovered/Not Resolved]
  - Muscle atrophy [Unknown]
  - Laboratory test abnormal [Not Recovered/Not Resolved]
  - Fatigue [Not Recovered/Not Resolved]
  - Urinary tract infection [Unknown]
  - Platelet count decreased [Not Recovered/Not Resolved]
  - Coccidioidomycosis [Recovered/Resolved]
  - Hyperhidrosis [Unknown]
  - Renal disorder [Unknown]
  - Contusion [Unknown]
  - CD4 lymphocytes decreased [Recovering/Resolving]
  - Weight decreased [Recovering/Resolving]
  - Chest pain [Not Recovered/Not Resolved]
  - Vomiting [Recovering/Resolving]
  - Photosensitivity reaction [Not Recovered/Not Resolved]
  - Cough [Unknown]
  - Infection [Not Recovered/Not Resolved]
  - Poor venous access [Unknown]
  - Oxygen supplementation [Recovered/Resolved]
  - Abdominal discomfort [Unknown]
  - Gait disturbance [Unknown]
  - Blood magnesium decreased [Unknown]
  - Blood potassium decreased [Unknown]
  - Pain [Unknown]
  - Malaise [Not Recovered/Not Resolved]
  - Feeding disorder [Unknown]
  - Pyrexia [Recovered/Resolved]
  - Breast swelling [Unknown]

NARRATIVE: CASE EVENT DATE: 2015
